FAERS Safety Report 10243709 (Version 2)
Quarter: 2014Q2

REPORT INFORMATION
  Report Type: Spontaneous
  Country: TR (occurrence: TR)
  Receive Date: 20140618
  Receipt Date: 20140618
  Transmission Date: 20141212
  Serious: Yes (Other)
  Sender: FDA-Public Use
  Company Number: TR-NOVOPROD-386493

PATIENT
  Age: 38 Year
  Sex: Female
  Weight: 98 kg

DRUGS (5)
  1. ACTRAPID HM PENFILL [Suspect]
     Indication: TYPE 2 DIABETES MELLITUS
     Dosage: 14 IU, QD
     Route: 058
     Dates: start: 20130820, end: 20130910
  2. INSULATARD HM PENFILL [Suspect]
     Indication: TYPE 2 DIABETES MELLITUS
     Dosage: 21 U, QD
     Route: 058
     Dates: start: 20130820, end: 20130910
  3. ALFAMET [Concomitant]
     Indication: HYPERTENSION
     Dosage: 750 MG, QD
     Route: 048
     Dates: start: 20130730
  4. EUTHYROX [Concomitant]
     Indication: HYPOTHYROIDISM
     Dosage: 1X1
     Route: 048
     Dates: start: 201304
  5. FOLIDOCE [Concomitant]
     Indication: VITAMIN SUPPLEMENTATION
     Dosage: 1X1
     Route: 065
     Dates: start: 20130705

REACTIONS (2)
  - Abortion spontaneous [Recovered/Resolved]
  - Exposure during pregnancy [Recovered/Resolved]
